FAERS Safety Report 9661054 (Version 1)
Quarter: 2013Q4

REPORT INFORMATION
  Report Type: Report from Study
  Country: US (occurrence: US)
  Receive Date: 20131031
  Receipt Date: 20131031
  Transmission Date: 20140711
  Serious: Yes (Other)
  Sender: FDA-Public Use
  Company Number: US-ABBVIE-13P-163-1161658-00

PATIENT
  Sex: Female

DRUGS (2)
  1. LUPRON DEPOT [Suspect]
     Indication: ENDOMETRIOSIS
     Route: 030
     Dates: start: 1998, end: 1998
  2. LUPRON DEPOT [Suspect]
     Route: 030
     Dates: start: 2001, end: 2001

REACTIONS (2)
  - Premature labour [Recovered/Resolved]
  - Gestational hypertension [Recovered/Resolved]
